FAERS Safety Report 8808199 (Version 1)
Quarter: 2012Q4

REPORT INFORMATION
  Report Type: 
  Country: US (occurrence: US)
  Receive Date: 20120925
  Receipt Date: 20120925
  Transmission Date: 20130627
  Serious: No
  Sender: FDA-Public Use
  Company Number: US-ASTRAZENECA-2012SE70522

PATIENT
  Age: 52 Year
  Sex: Male
  Weight: 101.2 kg

DRUGS (2)
  1. NEXIUM [Suspect]
     Indication: GASTROOESOPHAGEAL REFLUX DISEASE
     Route: 048
     Dates: start: 2006
  2. ALLERGY SHOTS [Concomitant]

REACTIONS (2)
  - Throat irritation [Unknown]
  - Drug dose omission [Unknown]
